FAERS Safety Report 9821083 (Version 2)
Quarter: 2014Q1

REPORT INFORMATION
  Report Type: Report from Study
  Country: CA (occurrence: CA)
  Receive Date: 20140116
  Receipt Date: 20140130
  Transmission Date: 20141002
  Serious: Yes (Other)
  Sender: FDA-Public Use
  Company Number: CA-ABBVIE-14P-028-1187860-00

PATIENT
  Sex: Female
  Weight: 58.57 kg

DRUGS (2)
  1. HUMIRA [Suspect]
     Indication: COLITIS ULCERATIVE
     Route: 058
     Dates: start: 20130107, end: 201303
  2. HUMIRA [Suspect]
     Indication: CROHN^S DISEASE

REACTIONS (4)
  - Diverticular perforation [Unknown]
  - Diverticulitis [Unknown]
  - Sepsis [Unknown]
  - Anaemia [Recovering/Resolving]
